FAERS Safety Report 6230351-X (Version None)
Quarter: 2009Q2

REPORT INFORMATION
  Report Type: 
  Country: None (occurrence: None)
  Receive Date: 20090615
  Receipt Date: 20090611
  Transmission Date: 20091009
  Serious: Yes (Death)
  Sender: FDA-Public Use
  Company Number: US-AMGEN-US350222

PATIENT
  Sex: Male
  Weight: 87 kg

DRUGS (9)
  1. NPLATE [Suspect]
     Indication: THROMBOCYTOPENIA
     Route: 058
     Dates: start: 20090501, end: 20090508
  2. CARDIZEM [Concomitant]
     Route: 042
     Dates: start: 20090427, end: 20090430
  3. AMIODARONE HCL [Concomitant]
     Route: 042
     Dates: start: 20090427, end: 20090428
  4. INSULIN [Concomitant]
     Route: 042
     Dates: start: 20090429, end: 20090429
  5. NEOSYNEPHRIN-POS [Concomitant]
     Route: 042
     Dates: start: 20090409, end: 20090504
  6. VERSED [Concomitant]
     Route: 042
     Dates: start: 20090504, end: 20090504
  7. FENTANYL [Concomitant]
     Route: 042
     Dates: start: 20090506, end: 20090511
  8. VASOPRESSIN INJECTION [Concomitant]
     Route: 042
     Dates: start: 20090507, end: 20090508
  9. BREVIBLOC [Concomitant]
     Route: 042
     Dates: start: 20090505, end: 20090508

REACTIONS (2)
  - POST PROCEDURAL SEPSIS [None]
  - SEPSIS [None]
